FAERS Safety Report 16151073 (Version 1)
Quarter: 2019Q2

REPORT INFORMATION
  Report Type: Spontaneous
  Country: FR (occurrence: FR)
  Receive Date: 20190403
  Receipt Date: 20190403
  Transmission Date: 20190711
  Serious: Yes (Hospitalization)
  Sender: FDA-Public Use
  Company Number: PHHY2019FR073320

PATIENT
  Age: 48 Year
  Sex: Female
  Weight: 59 kg

DRUGS (3)
  1. ZOMETA [Suspect]
     Active Substance: ZOLEDRONIC ACID
     Indication: METASTASIS
     Dosage: 4 MG, QMO
     Route: 042
     Dates: start: 20050615, end: 20051115
  2. AREDIA [Suspect]
     Active Substance: PAMIDRONATE DISODIUM
     Indication: METASTASIS
     Route: 042
  3. CLASTOBAN [Suspect]
     Active Substance: CLODRONIC ACID
     Indication: METASTASIS
     Dosage: 800 MG, BID
     Route: 048
     Dates: start: 20040715, end: 20050115

REACTIONS (3)
  - Toothache [Unknown]
  - Osteonecrosis of jaw [Unknown]
  - Periodontal destruction [Unknown]

NARRATIVE: CASE EVENT DATE: 20051216
